FAERS Safety Report 14406205 (Version 1)
Quarter: 2018Q1

REPORT INFORMATION
  Report Type: Spontaneous
  Country: US (occurrence: US)
  Receive Date: 20180118
  Receipt Date: 20180118
  Transmission Date: 20180509
  Serious: No
  Sender: FDA-Public Use
  Company Number: US-BAXTER-2018BAX002355

PATIENT
  Age: 70 Year
  Sex: Male

DRUGS (1)
  1. DIANEAL PD-2 WITH DEXTROSE [Suspect]
     Active Substance: CALCIUM CHLORIDE\DEXTROSE\MAGNESIUM CHLORIDE\SODIUM CHLORIDE\SODIUM LACTATE
     Indication: PERITONEAL DIALYSIS
     Route: 033
     Dates: start: 20170707

REACTIONS (5)
  - Arthralgia [Unknown]
  - Procedural pain [Unknown]
  - Muscular weakness [Unknown]
  - Inguinal hernia [Unknown]
  - Back pain [Unknown]

NARRATIVE: CASE EVENT DATE: 20171201
